FAERS Safety Report 6697533-4 (Version None)
Quarter: 2010Q2

REPORT INFORMATION
  Report Type: 
  Country: None (occurrence: None)
  Receive Date: 20100422
  Receipt Date: 20100407
  Transmission Date: 20101027
  Serious: Yes (Death, Other)
  Sender: FDA-Public Use
  Company Number: 2010001293

PATIENT
  Age: 40 Year
  Sex: Female

DRUGS (3)
  1. ERLOTINIB (ERLOTINIB) (TABLET) (ERLOTINIB) [Suspect]
     Indication: LUNG ADENOCARCINOMA
     Dosage: ORAL
     Route: 048
     Dates: start: 20100306, end: 20100321
  2. PACLITAXEL [Suspect]
     Indication: LUNG ADENOCARCINOMA
     Dates: start: 20100305, end: 20100305
  3. CARBOPLATIN [Suspect]
     Indication: LUNG ADENOCARCINOMA
     Dates: start: 20100305, end: 20100305

REACTIONS (5)
  - DRUG HYPERSENSITIVITY [None]
  - INFUSION RELATED REACTION [None]
  - OVERDOSE [None]
  - RESPIRATORY DISTRESS [None]
  - SUDDEN DEATH [None]
